FAERS Safety Report 12992482 (Version 2)
Quarter: 2016Q4

REPORT INFORMATION
  Report Type: Spontaneous
  Country: JP (occurrence: JP)
  Receive Date: 20161202
  Receipt Date: 20161214
  Transmission Date: 20170207
  Serious: Yes (Hospitalization, Other)
  Sender: FDA-Public Use
  Company Number: PHJP2016JP034389

PATIENT
  Age: 47 Year
  Sex: Female

DRUGS (3)
  1. RISPERIDONE. [Suspect]
     Active Substance: RISPERIDONE
     Indication: SCHIZOPHRENIA
     Dosage: 4 MG, UNK
     Route: 065
  2. QUETIAPINE. [Suspect]
     Active Substance: QUETIAPINE
     Indication: SCHIZOPHRENIA
     Dosage: 25 MG, UNK
     Route: 065
  3. TERBINAFINE. [Suspect]
     Active Substance: TERBINAFINE
     Indication: TINEA PEDIS
     Dosage: 125 MG, UNK
     Route: 048

REACTIONS (9)
  - Slow response to stimuli [Recovering/Resolving]
  - Salivary hypersecretion [Recovering/Resolving]
  - Muscle rigidity [Recovering/Resolving]
  - Hyperthermia [Recovering/Resolving]
  - Neuroleptic malignant syndrome [Unknown]
  - Dysphagia [Recovering/Resolving]
  - Hyperhidrosis [Recovering/Resolving]
  - Posture abnormal [Recovering/Resolving]
  - Dysuria [Recovering/Resolving]
